FAERS Safety Report 16721194 (Version 1)
Quarter: 2019Q3

REPORT INFORMATION
  Report Type: Spontaneous
  Country: US (occurrence: US)
  Receive Date: 20190820
  Receipt Date: 20190820
  Transmission Date: 20191005
  Serious: Yes (Other)
  Sender: FDA-Public Use
  Company Number: PHHY2019US192711

PATIENT
  Age: 32 Year
  Sex: Female

DRUGS (2)
  1. OXACILLIN [Suspect]
     Active Substance: OXACILLIN SODIUM
     Indication: SEPTIC SHOCK
  2. OXACILLIN [Suspect]
     Active Substance: OXACILLIN SODIUM
     Indication: ENDOCARDITIS
     Dosage: 2 G, Q6H
     Route: 042

REACTIONS (3)
  - Hypersensitivity vasculitis [Recovered/Resolved]
  - Dermatitis bullous [Recovered/Resolved]
  - Purpura [Recovered/Resolved]
